FAERS Safety Report 8577744-3 (Version None)
Quarter: 2012Q3

REPORT INFORMATION
  Report Type: 
  Country: None (occurrence: None)
  Receive Date: 20120808
  Receipt Date: 20120803
  Transmission Date: 20120928
  Serious: Yes (Other)
  Sender: FDA-Public Use
  Company Number: US-TEVA-352155USA

PATIENT
  Sex: Female

DRUGS (3)
  1. LAMOTRIGINE [Suspect]
  2. NORGESTIMATE AND ETHINYL ESTRADIOL [Concomitant]
  3. LAMOTRIGINE [Suspect]
     Dosage: 400 MILLIGRAM DAILY;
     Route: 048
     Dates: start: 20120713

REACTIONS (12)
  - CONVULSION [None]
  - INSOMNIA [None]
  - VISION BLURRED [None]
  - ANGER [None]
  - DIPLOPIA [None]
  - HYPERTENSION [None]
  - HEART RATE INCREASED [None]
  - DYSSTASIA [None]
  - CONTUSION [None]
  - PALPITATIONS [None]
  - VERTIGO [None]
  - MOTOR DYSFUNCTION [None]
